FAERS Safety Report 4817708-6 (Version None)
Quarter: 2005Q4

REPORT INFORMATION
  Report Type: 
  Country: None (occurrence: None)
  Receive Date: 20051101
  Receipt Date: 20051101
  Transmission Date: 20060501
  Serious: Yes (Disabling)
  Sender: FDA-Public Use
  Company Number: None

PATIENT
  Age: 49 Year
  Sex: Male
  Weight: 83.9154 kg

DRUGS (2)
  1. KETEK [Suspect]
     Dosage: 2 PILLS AT SAME TIME DAILY - 5 DAYS
  2. LEVAQUIN [Suspect]
     Indication: ADVERSE DRUG REACTION
     Dosage: 1 PILL (ONLY TOOK ONE)

REACTIONS (17)
  - ASTHENIA [None]
  - BURNING SENSATION [None]
  - COUGH [None]
  - DEPRESSION [None]
  - FATIGUE [None]
  - FEELING ABNORMAL [None]
  - FEELING HOT AND COLD [None]
  - HEAD DISCOMFORT [None]
  - HYPERHIDROSIS [None]
  - HYPERSENSITIVITY [None]
  - HYPOAESTHESIA [None]
  - MALAISE [None]
  - NASAL CONGESTION [None]
  - PARAESTHESIA [None]
  - THIRST [None]
  - TIC [None]
  - VIRAL INFECTION [None]
